FAERS Safety Report 9449766 (Version 3)
Quarter: 2013Q4

REPORT INFORMATION
  Report Type: Spontaneous
  Country: JP (occurrence: JP)
  Receive Date: 20130809
  Receipt Date: 20131008
  Transmission Date: 20140711
  Serious: Yes (Hospitalization)
  Sender: FDA-Public Use
  Company Number: JP-ASTRAZENECA-2013SE60524

PATIENT
  Age: 64 Year
  Sex: Male

DRUGS (8)
  1. CASODEX [Suspect]
     Indication: PROSTATE CANCER
     Route: 048
     Dates: start: 20130219, end: 20130611
  2. LEUPLIN [Suspect]
     Indication: PROSTATE CANCER
     Route: 058
     Dates: start: 20130104, end: 20130713
  3. NEXIUM [Concomitant]
     Indication: GASTRITIS
     Route: 048
     Dates: start: 20121105, end: 20130823
  4. HARNAL D [Concomitant]
     Indication: BENIGN PROSTATIC HYPERPLASIA
     Route: 048
     Dates: start: 20121206
  5. CALCIUM LACTATE HYDRATE [Concomitant]
     Indication: PROSTATE CANCER
     Route: 048
     Dates: start: 20130713
  6. CELECOX [Concomitant]
     Indication: METASTASES TO BONE
     Route: 048
     Dates: start: 20130122, end: 20130810
  7. BICALUTAMIDE [Concomitant]
     Indication: PROSTATE CANCER
     Route: 048
     Dates: start: 20130121, end: 20130713
  8. RANMARK [Concomitant]
     Indication: PROSTATE CANCER
     Route: 058
     Dates: start: 20130121

REACTIONS (1)
  - Hepatic function abnormal [Recovering/Resolving]
